FAERS Safety Report 7505460-5 (Version None)
Quarter: 2011Q2

REPORT INFORMATION
  Report Type: 
  Country: None (occurrence: None)
  Receive Date: 20110518
  Receipt Date: 20110504
  Transmission Date: 20111010
  Serious: Yes (Other)
  Sender: FDA-Public Use
  Company Number: 2011102029

PATIENT

DRUGS (1)
  1. DALTEPARIN SODIUM [Suspect]

REACTIONS (5)
  - TRANSIENT ISCHAEMIC ATTACK [None]
  - CEREBROVASCULAR ACCIDENT [None]
  - TRICUSPID VALVE DISEASE [None]
  - DRUG INEFFECTIVE [None]
  - HYPERTENSION [None]
